FAERS Safety Report 5051962-3 (Version None)
Quarter: 2006Q3

REPORT INFORMATION
  Report Type: 
  Country: None (occurrence: None)
  Receive Date: 20060710
  Receipt Date: 20060627
  Transmission Date: 20061208
  Serious: Yes (Other)
  Sender: FDA-Public Use
  Company Number: 2006081202

PATIENT
  Age: 69 Year
  Sex: Female
  Weight: 58.9676 kg

DRUGS (8)
  1. ZANTAC 150 [Suspect]
     Indication: GASTROOESOPHAGEAL REFLUX DISEASE
     Dosage: 1 TABLET ONCE DAILY AT BEDTIME, ORAL
     Route: 048
     Dates: start: 20060613, end: 20060625
  2. PREDNISONE [Concomitant]
  3. THEOPHYLLINE [Concomitant]
  4. PANTOPRAZOLE SODIUM [Concomitant]
  5. ALPRAZOLAM [Concomitant]
  6. TRIAMCINOLONE ACETONIDE [Concomitant]
  7. COMBIVENT [Concomitant]
  8. ANTI-ASTHMATICS [Concomitant]

REACTIONS (1)
  - VAGINAL HAEMORRHAGE [None]
